FAERS Safety Report 25571373 (Version 1)
Quarter: 2025Q3

REPORT INFORMATION
  Report Type: Spontaneous
  Country: EU (occurrence: EU)
  Receive Date: 20250717
  Receipt Date: 20250717
  Transmission Date: 20251020
  Serious: Yes (Other)
  Sender: FRESENIUS KABI
  Company Number: None

PATIENT
  Age: 67 Year
  Sex: Male

DRUGS (5)
  1. FLUCONAZOLE [Suspect]
     Active Substance: FLUCONAZOLE
     Indication: Urinary tract infection
     Route: 042
     Dates: start: 20250630, end: 20250630
  2. CEFTRIAXONE [Concomitant]
     Active Substance: CEFTRIAXONE
     Indication: Antibiotic prophylaxis
     Route: 042
     Dates: start: 20250630, end: 20250630
  3. MIDAZOLAM [Concomitant]
     Active Substance: MIDAZOLAM
     Indication: Product used for unknown indication
     Route: 042
     Dates: start: 20250630, end: 20250630
  4. LIDOCAINE B. BRAUN 20 mg/ml Injectable solution, 100 ampoules of 10 ml [Concomitant]
     Indication: Anaesthesia
     Route: 042
     Dates: start: 20250630, end: 20250630
  5. ROPIVACAINA ALTAN 7,5 mg/ml EFG INJECTABLE SOLUTION, 5 ampoules of 10 [Concomitant]
     Indication: Anaesthesia
     Route: 042
     Dates: start: 20250630, end: 20250630

REACTIONS (1)
  - Urticaria [Recovered/Resolved]

NARRATIVE: CASE EVENT DATE: 20250630
